FAERS Safety Report 20057028 (Version 1)
Quarter: 2021Q4

REPORT INFORMATION
  Report Type: Spontaneous
  Country: US (occurrence: US)
  Receive Date: 20211111
  Receipt Date: 20211111
  Transmission Date: 20220303
  Serious: No
  Sender: FDA-Public Use
  Company Number: US-drreddys-SPO/USA/21/0143640

PATIENT
  Age: 34 Year
  Sex: Male

DRUGS (1)
  1. ACCUTANE [Suspect]
     Active Substance: ISOTRETINOIN
     Indication: Product used for unknown indication
     Dosage: RMA ISSUE DATE: 30 JUNE 2021 3:40:53 PM, 2 AUGUST 2021 4:58:36 PM, 7 SEPTEMBER 2021 12:09:52 PM AND
     Dates: start: 20210630, end: 20211108

REACTIONS (1)
  - Adverse drug reaction [Unknown]
